FAERS Safety Report 8284118-1 (Version None)
Quarter: 2012Q2

REPORT INFORMATION
  Report Type: 
  Country: None (occurrence: None)
  Receive Date: 20120413
  Receipt Date: 20111208
  Transmission Date: 20120825
  Serious: No
  Sender: FDA-Public Use
  Company Number: US-ASTRAZENECA-2011SE74367

PATIENT
  Age: 49 Year
  Sex: Female
  Weight: 86.2 kg

DRUGS (6)
  1. EFFEXOR [Concomitant]
  2. METOPROLOL TARTRATE [Concomitant]
  3. SEROQUEL [Suspect]
     Indication: SOCIAL PHOBIA
     Route: 048
     Dates: start: 20100101
  4. NEXIUM [Suspect]
     Indication: GASTROOESOPHAGEAL REFLUX DISEASE
     Route: 048
     Dates: start: 20050101
  5. SEROQUEL [Suspect]
     Indication: DEPRESSION
     Route: 048
     Dates: start: 20100101
  6. HYDROCHLOROTHIAZIDE [Concomitant]

REACTIONS (7)
  - GASTROOESOPHAGEAL REFLUX DISEASE [None]
  - DRUG DOSE OMISSION [None]
  - OFF LABEL USE [None]
  - MOOD SWINGS [None]
  - INCREASED UPPER AIRWAY SECRETION [None]
  - COUGH [None]
  - DYSPEPSIA [None]
